FAERS Safety Report 4437433-3 (Version None)
Quarter: 2004Q3

REPORT INFORMATION
  Report Type: 
  Country: None (occurrence: None)
  Receive Date: 20040830
  Receipt Date: 20040824
  Transmission Date: 20050211
  Serious: Yes (Other)
  Sender: FDA-Public Use
  Company Number: PHRM2004FR02668

PATIENT
  Age: 30 Year
  Sex: Male

DRUGS (1)
  1. COTAREG [Suspect]
     Indication: HYPERTENSION
     Dosage: 1 DF, ONCE/SINGLE
     Route: 048

REACTIONS (1)
  - ASTHMA [None]
